FAERS Safety Report 7530236-2 (Version None)
Quarter: 2011Q2

REPORT INFORMATION
  Report Type: 
  Country: None (occurrence: None)
  Receive Date: 20110607
  Receipt Date: 20110527
  Transmission Date: 20111010
  Serious: Yes (Other)
  Sender: FDA-Public Use
  Company Number: US-BAYER-2011-047032

PATIENT
  Age: 69 Year
  Sex: Female
  Weight: 63 kg

DRUGS (8)
  1. LEXAPRO [Concomitant]
  2. ALAVERT [Concomitant]
  3. ALEVE (CAPLET) [Suspect]
     Indication: HEADACHE
     Dosage: 220 MG, ONCE
     Route: 048
  4. AMLODIPINE [Concomitant]
  5. METHYLIN [Concomitant]
  6. FLONASE [Concomitant]
  7. DOMEBORO [Suspect]
     Indication: DERMATITIS CONTACT
     Dosage: 1 DF, UNK
     Route: 061
     Dates: start: 20110523, end: 20110526
  8. LAMICTAL [Concomitant]

REACTIONS (3)
  - DERMATITIS CONTACT [None]
  - BLOOD PRESSURE INCREASED [None]
  - DIZZINESS [None]
